FAERS Safety Report 20201788 (Version 1)
Quarter: 2021Q4

REPORT INFORMATION
  Report Type: Spontaneous
  Country: US (occurrence: None)
  Receive Date: 20211217
  Receipt Date: 20211217
  Transmission Date: 20220303
  Serious: Yes (Life-Threatening)
  Sender: FDA-Public Use
  Company Number: None

PATIENT
  Age: 48 Year
  Sex: Female
  Weight: 95.5 kg

DRUGS (2)
  1. PROPOFOL [Suspect]
     Active Substance: PROPOFOL
     Route: 061
  2. PROPOFOL [Concomitant]
     Active Substance: PROPOFOL

REACTIONS (5)
  - Accidental exposure to product [None]
  - Application site erythema [None]
  - Pruritus [None]
  - Wheezing [None]
  - Dysphonia [None]

NARRATIVE: CASE EVENT DATE: 20211217
